FAERS Safety Report 23845210 (Version 1)
Quarter: 2024Q2

REPORT INFORMATION
  Report Type: Spontaneous
  Country: SE (occurrence: SE)
  Receive Date: 20240511
  Receipt Date: 20240511
  Transmission Date: 20240716
  Serious: Yes (Other)
  Sender: FDA-Public Use
  Company Number: None

PATIENT
  Age: 62 Year
  Sex: Male
  Weight: 71 kg

DRUGS (2)
  1. NEUPRO [Suspect]
     Active Substance: ROTIGOTINE
     Indication: Product used for unknown indication
     Dosage: FORM STRENGTH: 8 MILLIGRAM
  2. CARBIDOPA\LEVODOPA [Suspect]
     Active Substance: CARBIDOPA\LEVODOPA
     Indication: Parkinson^s disease
     Dosage: STOP DATE TEXT: A COUPLE OF MONTHS AGO, JEJUNAL
     Dates: start: 20170904

REACTIONS (6)
  - Polyneuropathy [Not Recovered/Not Resolved]
  - Peripheral swelling [Not Recovered/Not Resolved]
  - Guillain-Barre syndrome [Unknown]
  - Infection [Unknown]
  - Nasopharyngitis [Unknown]
  - Device dislocation [Unknown]

NARRATIVE: CASE EVENT DATE: 20231201
